FAERS Safety Report 7365683-5 (Version None)
Quarter: 2011Q1

REPORT INFORMATION
  Report Type: 
  Country: None (occurrence: None)
  Receive Date: 20110316
  Receipt Date: 20110316
  Transmission Date: 20110831
  Serious: Yes (Disabling)
  Sender: FDA-Public Use
  Company Number: None

PATIENT
  Age: 48 Year
  Sex: Male
  Weight: 108.8 kg

DRUGS (1)
  1. MAGNEVIST [Suspect]
     Indication: SCAN WITH CONTRAST
     Dosage: 20 ML ONE TIME IV
     Route: 042
     Dates: start: 20110221, end: 20110221

REACTIONS (8)
  - VOMITING [None]
  - DYSPNOEA [None]
  - COUGH [None]
  - HYPOAESTHESIA FACIAL [None]
  - CHEST DISCOMFORT [None]
  - NAUSEA [None]
  - EYE SWELLING [None]
  - LIP SWELLING [None]
